FAERS Safety Report 5004030-0 (Version None)
Quarter: 2006Q2

REPORT INFORMATION
  Report Type: 
  Country: None (occurrence: None)
  Receive Date: 20060515
  Receipt Date: 20060515
  Transmission Date: 20061013
  Serious: Yes (Other)
  Sender: FDA-Public Use
  Company Number: None

PATIENT
  Age: 54 Year
  Sex: Female
  Weight: 145.151 kg

DRUGS (1)
  1. PHOSPHO TARGET [Suspect]
     Indication: COLONOSCOPY
     Dosage: TWO BOTTLES ONE EVERY HOUR PO
     Route: 048
     Dates: start: 20051101, end: 20051102

REACTIONS (13)
  - ANURIA [None]
  - ASTHENIA [None]
  - DEHYDRATION [None]
  - DIARRHOEA [None]
  - EMOTIONAL DISTRESS [None]
  - HYPOTENSION [None]
  - ILL-DEFINED DISORDER [None]
  - PYREXIA [None]
  - SPINAL DISORDER [None]
  - TREMOR [None]
  - VASODILATATION [None]
  - VOMITING [None]
  - WHITE BLOOD CELL COUNT INCREASED [None]
